FAERS Safety Report 17672833 (Version 3)
Quarter: 2021Q3

REPORT INFORMATION
  Report Type: Spontaneous
  Country: SE (occurrence: SE)
  Receive Date: 20200416
  Receipt Date: 20210719
  Transmission Date: 20211014
  Serious: No
  Sender: FDA-Public Use
  Company Number: SE-ROCHE-2580348

PATIENT
  Sex: Female

DRUGS (4)
  1. MABTHERA [Suspect]
     Active Substance: RITUXIMAB
     Indication: MULTIPLE SCLEROSIS
     Route: 065
     Dates: start: 20160602
  2. RIXATHON [Concomitant]
     Active Substance: RITUXIMAB
     Dates: start: 20200325
  3. MABTHERA [Suspect]
     Active Substance: RITUXIMAB
     Route: 065
     Dates: start: 20160616
  4. RIXATHON [Concomitant]
     Active Substance: RITUXIMAB
     Dates: start: 20200312

REACTIONS (2)
  - Maternal exposure before pregnancy [Unknown]
  - Off label use [Unknown]
